FAERS Safety Report 5163022-1 (Version None)
Quarter: 2006Q4

REPORT INFORMATION
  Report Type: 
  Country: None (occurrence: None)
  Receive Date: 20061201
  Receipt Date: 20060712
  Transmission Date: 20070319
  Serious: Yes (Other)
  Sender: FDA-Public Use
  Company Number: FRWYE146613JUL06

PATIENT
  Sex: Female

DRUGS (1)
  1. ENBREL [Suspect]
     Indication: RHEUMATOID ARTHRITIS
     Dosage: UNKNOWN
     Route: 058
     Dates: start: 20040101, end: 20061120

REACTIONS (6)
  - BORRELIA BURGDORFERI SEROLOGY POSITIVE [None]
  - BORRELIA INFECTION [None]
  - EPSTEIN-BARR VIRUS INFECTION [None]
  - EPSTEIN-BARR VIRUS TEST POSITIVE [None]
  - RETINITIS [None]
  - UVEITIS [None]
